FAERS Safety Report 9444827 (Version 1)
Quarter: 2013Q3

REPORT INFORMATION
  Report Type: Spontaneous
  Country: US (occurrence: US)
  Receive Date: 20130807
  Receipt Date: 20130807
  Transmission Date: 20140515
  Serious: No
  Sender: FDA-Public Use
  Company Number: US-BAYER-2013-093291

PATIENT
  Sex: Male
  Weight: 97.51 kg

DRUGS (16)
  1. BETASERON [Suspect]
     Dosage: 0.25 MG, QOD
     Route: 058
  2. TOPAMAX [Concomitant]
     Dosage: 25 MG, UNK
  3. LYRICA [Concomitant]
     Dosage: 100 MG, UNK
  4. COPAXONE [Concomitant]
     Dosage: 20 MG/ML, UNK
  5. CARBAMAZEPINE [Concomitant]
     Dosage: 200 MG, UNK
  6. OXAPROZIN [Concomitant]
     Dosage: 600 MG, UNK
  7. VENLAFAXINE [Concomitant]
     Dosage: 50 MG, UNK
  8. VALIUM [Concomitant]
     Dosage: 5 MG, UNK
  9. ZOFRAN [Concomitant]
     Dosage: 4 MG, UNK
  10. MECLIZINE [Concomitant]
     Dosage: 25 MG, UNK
  11. VITAMIN C [Concomitant]
     Dosage: 100 MG, UNK
  12. VITAMIN D [Concomitant]
     Dosage: 400 U, UNK
  13. ECHINACEA [Concomitant]
     Dosage: 80 MG, UNK
  14. SUMATRIPTAN [Concomitant]
     Dosage: 100 MG, UNK
  15. ZEGERID [Concomitant]
     Dosage: 20-1100
  16. CHOLESTYRAMINE [Concomitant]

REACTIONS (3)
  - Dysphagia [Unknown]
  - Rash [Unknown]
  - Hepatic enzyme abnormal [Unknown]
